FAERS Safety Report 19114544 (Version 1)
Quarter: 2021Q2

REPORT INFORMATION
  Report Type: Spontaneous
  Country: US (occurrence: US)
  Receive Date: 20210408
  Receipt Date: 20210408
  Transmission Date: 20210717
  Serious: No
  Sender: FDA-Public Use
  Company Number: US-PERRIGO-20US017893

PATIENT
  Age: 93 Year
  Sex: Female
  Weight: 68.03 kg

DRUGS (2)
  1. AMLODIPINE [Concomitant]
     Active Substance: AMLODIPINE BESYLATE
     Indication: HYPERTENSION
     Dosage: UNKNOWN, UNKNOWN
     Route: 048
     Dates: start: 2019
  2. ACETAMINOPHEN. [Suspect]
     Active Substance: ACETAMINOPHEN
     Indication: PAIN
     Dosage: 650 MG, 4 TIMES IN 10.5 HOURS
     Route: 048
     Dates: start: 20201210, end: 20201210

REACTIONS (6)
  - Wrong technique in product usage process [Recovered/Resolved]
  - Condition aggravated [Not Recovered/Not Resolved]
  - Underdose [Recovered/Resolved]
  - Peripheral swelling [Recovering/Resolving]
  - Inappropriate schedule of product administration [Recovered/Resolved]
  - Therapeutic product effect incomplete [Unknown]

NARRATIVE: CASE EVENT DATE: 20201210
